FAERS Safety Report 4820303-6 (Version None)
Quarter: 2005Q4

REPORT INFORMATION
  Report Type: 
  Country: None (occurrence: None)
  Receive Date: 20051104
  Receipt Date: 20051004
  Transmission Date: 20060501
  Serious: Yes (Hospitalization)
  Sender: FDA-Public Use
  Company Number: 200513238FR

PATIENT
  Age: 75 Year
  Sex: Female
  Weight: 52 kg

DRUGS (7)
  1. ARAVA [Suspect]
     Indication: RHEUMATOID ARTHRITIS
     Route: 048
     Dates: end: 20050816
  2. ZOPLICONE [Suspect]
     Route: 048
     Dates: end: 20050816
  3. PLAQUENIL [Suspect]
     Route: 048
     Dates: end: 20050816
  4. SOLIAN [Suspect]
     Route: 048
     Dates: end: 20050816
  5. MOPRAL [Suspect]
     Route: 048
     Dates: end: 20050816
  6. ZOLOFT [Suspect]
     Route: 048
     Dates: end: 20050816
  7. MOBIC [Concomitant]
     Indication: RHEUMATOID ARTHRITIS

REACTIONS (3)
  - CONDITION AGGRAVATED [None]
  - RHEUMATOID ARTHRITIS [None]
  - THROMBOTIC THROMBOCYTOPENIC PURPURA [None]
